FAERS Safety Report 4993932-7 (Version None)
Quarter: 2006Q2

REPORT INFORMATION
  Report Type: 
  Country: None (occurrence: None)
  Receive Date: 20060505
  Receipt Date: 20060213
  Transmission Date: 20061013
  Serious: Yes (Life-Threatening, Hospitalization, Other)
  Sender: FDA-Public Use
  Company Number: US-GLAXOSMITHKLINE-A0593500A

PATIENT
  Age: 12 Year
  Sex: Female
  Weight: 70 kg

DRUGS (2)
  1. ADVAIR DISKUS 100/50 [Suspect]
     Indication: ASTHMA
     Dosage: 1BLS TWICE PER DAY
     Route: 055
     Dates: start: 20040101, end: 20051101
  2. FLOVENT [Concomitant]
     Indication: ASTHMA
     Route: 055
     Dates: start: 20060201

REACTIONS (6)
  - ASTHMA [None]
  - EYE SWELLING [None]
  - FACE OEDEMA [None]
  - RASH [None]
  - SWOLLEN TONGUE [None]
  - URTICARIA [None]
